FAERS Safety Report 12423831 (Version 1)
Quarter: 2016Q2

REPORT INFORMATION
  Report Type: Spontaneous
  Country: US (occurrence: None)
  Receive Date: 20160531
  Receipt Date: 20160531
  Transmission Date: 20160815
  Serious: Yes (Life-Threatening, Hospitalization, Other)
  Sender: FDA-Public Use
  Company Number: None

PATIENT
  Age: 51 Year
  Sex: Male
  Weight: 91.3 kg

DRUGS (1)
  1. AMIODARONE [Suspect]
     Active Substance: AMIODARONE
     Indication: ATRIAL FIBRILLATION
     Dosage: 600 MG CONTINUOUS INTRAVENOUS DRIP
     Route: 041
     Dates: start: 20160209, end: 20160214

REACTIONS (7)
  - Diarrhoea [None]
  - Torsade de pointes [None]
  - Hypomagnesaemia [None]
  - Hypokalaemia [None]
  - Respiratory failure [None]
  - Tachyarrhythmia [None]
  - Cardio-respiratory arrest [None]

NARRATIVE: CASE EVENT DATE: 20160214
